FAERS Safety Report 10519536 (Version 2)
Quarter: 2014Q4

REPORT INFORMATION
  Report Type: Spontaneous
  Country: US (occurrence: US)
  Receive Date: 20141015
  Receipt Date: 20141121
  Transmission Date: 20150528
  Serious: Yes (Death, Hospitalization)
  Sender: FDA-Public Use
  Company Number: US-PFIZER INC-2014281524

PATIENT
  Age: 74 Year
  Sex: Female

DRUGS (19)
  1. RIFAXIMIN [Concomitant]
     Active Substance: RIFAXIMIN
     Dosage: 550 MG, 2X/DAY
  2. XYZAL [Concomitant]
     Active Substance: LEVOCETIRIZINE DIHYDROCHLORIDE
     Indication: HYPERSENSITIVITY
     Dosage: 5 MG, DAILY (EACH MORNING)
  3. L-VILL [Concomitant]
     Dosage: 25 MG, DAILY (AT NIGHT)
  4. LASIX [Concomitant]
     Active Substance: FUROSEMIDE
     Dosage: ONE AND HALF TABLET ON OFF DAYS OF DIALYSIS DAYS
  5. REVATIO [Suspect]
     Active Substance: SILDENAFIL CITRATE
     Indication: PULMONARY HYPERTENSION
     Dosage: 20 MG, 3X/DAY
  6. PRILOSEC [Concomitant]
     Active Substance: OMEPRAZOLE MAGNESIUM
     Indication: GASTRIC ULCER
     Dosage: 40 MG, (EACH MORNING)
  7. LACTULOSE. [Concomitant]
     Active Substance: LACTULOSE
     Dosage: 2 TABLESPOONS (30 ML),3 TIMES A DAY
  8. SODIUM BICARB [Concomitant]
     Dosage: 650 MG TABLET, 2 TABLETS, 2 TIMES A DAY
  9. REMODULIN [Concomitant]
     Active Substance: TREPROSTINIL
     Dosage: 10 MG/ML BY INFILTRATION ROUTE INCREASE BY 1 NG/KG/MIN EVERY WEEK UP TO 20 NG/KG MIN
  10. TOPROL XL [Concomitant]
     Active Substance: METOPROLOL SUCCINATE
     Indication: BLOOD PRESSURE
     Dosage: 1/2-TABLET AT NIGHT TIME
  11. SYNTHROID [Concomitant]
     Active Substance: LEVOTHYROXINE SODIUM
     Indication: THYROID DISORDER
     Dosage: 100 MG, DAILY (EACH MORNING)
  12. NOVOLOG 70/30 [Concomitant]
     Dosage: 50 MG IN THE MORNING AND 30 MG AT NIGHT
  13. PROAMATINE [Concomitant]
     Active Substance: MIDODRINE HYDROCHLORIDE
     Dosage: 10 MG, 1 TABLET ONE HOUR BEFORE DIALYSIS DAY
  14. PEPCID [Concomitant]
     Active Substance: FAMOTIDINE
     Dosage: 20 MG, 2X/DAY
  15. RENVELA [Concomitant]
     Active Substance: SEVELAMER CARBONATE
     Dosage: UNK, 3X/DAY (WITH MEAL)
  16. CLARITIN [Concomitant]
     Active Substance: LORATADINE
     Dosage: 10 MG, DAILY
  17. EMLA [Concomitant]
     Active Substance: LIDOCAINE\PRILOCAINE
     Indication: PAIN
     Dosage: AS NEEDED FOR PAIN ON GRAFT AREA FOR DIALYSIS DAY
  18. VITAMIN D [Concomitant]
     Active Substance: CHOLECALCIFEROL
     Dosage: 1 TABLET WEEKLY FOR 8 WEEKS
  19. LORTAB [Concomitant]
     Active Substance: ACETAMINOPHEN\HYDROCODONE BITARTRATE
     Indication: PAIN
     Dosage: 1/2 TAB EVERY 4 HOURS AS NEEDED

REACTIONS (1)
  - Death [Fatal]

NARRATIVE: CASE EVENT DATE: 20140725
